FAERS Safety Report 15563576 (Version 1)
Quarter: 2018Q4

REPORT INFORMATION
  Report Type: Report from Study
  Country: None (occurrence: FR)
  Receive Date: 20181029
  Receipt Date: 20181029
  Transmission Date: 20190205
  Serious: Yes (Other)
  Sender: FDA-Public Use
  Company Number: FR-TEIKOKU PHARMA USA-TPU2018-00677

PATIENT

DRUGS (1)
  1. VERSATIS [Suspect]
     Active Substance: LIDOCAINE
     Indication: NEURALGIA
     Route: 061

REACTIONS (7)
  - Drug ineffective [Unknown]
  - Inappropriate schedule of product administration [Unknown]
  - Drug intolerance [Unknown]
  - Drug dependence [Unknown]
  - Hypersensitivity [Unknown]
  - Overdose [Unknown]
  - Off label use [Unknown]
